FAERS Safety Report 10030611 (Version 2)
Quarter: 2014Q1

REPORT INFORMATION
  Report Type: Spontaneous
  Country: US (occurrence: US)
  Receive Date: 20140323
  Receipt Date: 20140323
  Transmission Date: 20141002
  Serious: No
  Sender: FDA-Public Use
  Company Number: US-ALLERGAN-1319060US

PATIENT
  Age: 59 Year
  Sex: Female

DRUGS (3)
  1. LATISSE 0.03% [Suspect]
     Indication: GROWTH OF EYELASHES
     Dosage: 2 GTT, A FEW TIMES A WEEK
     Route: 061
     Dates: start: 2013
  2. LATISSE 0.03% [Suspect]
     Dosage: 2 GTT, QHS
     Route: 061
     Dates: start: 201309
  3. CELEBREX [Concomitant]
     Indication: ARTHRITIS

REACTIONS (3)
  - Lid margin discharge [Recovered/Resolved]
  - Trichiasis [Not Recovered/Not Resolved]
  - Inappropriate schedule of drug administration [Unknown]
